FAERS Safety Report 7225754-0 (Version None)
Quarter: 2011Q1

REPORT INFORMATION
  Report Type: 
  Country: None (occurrence: None)
  Receive Date: 20110113
  Receipt Date: 20101228
  Transmission Date: 20110831
  Serious: No
  Sender: FDA-Public Use
  Company Number: US-B.I. PHARMACEUTICALS,INC./RIDGEFIELD-2011-BP-00323BP

PATIENT
  Sex: Male

DRUGS (14)
  1. PRADAXA [Suspect]
     Indication: ATRIAL FIBRILLATION
  2. CAMBCOR [Concomitant]
     Indication: ATRIAL FIBRILLATION
  3. LORTAB [Concomitant]
     Indication: PAIN
  4. ALLOPURINOL [Concomitant]
     Indication: GOUT
  5. DESIPRAMINE HCL [Concomitant]
     Indication: NEUROPATHY PERIPHERAL
  6. TRICOR [Concomitant]
     Indication: BLOOD CHOLESTEROL INCREASED
  7. TESTOSTERONE INJECTION [Concomitant]
     Indication: BLOOD TESTOSTERONE DECREASED
  8. PRADAXA [Suspect]
     Indication: PROPHYLAXIS
     Dosage: 300 MG
     Route: 048
     Dates: start: 20101201
  9. GABAPENTIN [Concomitant]
     Indication: NEUROPATHY PERIPHERAL
  10. TRAMADOL [Concomitant]
     Indication: NEUROPATHY PERIPHERAL
  11. CLONAZEPAM [Concomitant]
     Indication: RESTLESS LEGS SYNDROME
  12. MINOCYCLINE HCL [Concomitant]
     Indication: SKIN INFECTION
  13. METFORMIN HCL [Concomitant]
     Indication: DIABETES MELLITUS
  14. LISINOPRIL [Concomitant]
     Indication: HYPERTENSION

REACTIONS (2)
  - FATIGUE [None]
  - ASTHENIA [None]
